FAERS Safety Report 18479715 (Version 1)
Quarter: 2020Q4

REPORT INFORMATION
  Report Type: Spontaneous
  Country: ES (occurrence: ES)
  Receive Date: 20201109
  Receipt Date: 20201109
  Transmission Date: 20210114
  Serious: Yes (Other)
  Sender: FDA-Public Use
  Company Number: ES-PFIZER INC-2020435946

PATIENT
  Age: 64 Year
  Sex: Male

DRUGS (4)
  1. FENTANIL [Concomitant]
     Active Substance: FENTANYL
     Indication: PAIN
     Dosage: UNK
     Route: 062
  2. BRAFTOVI [Suspect]
     Active Substance: ENCORAFENIB
     Indication: METASTATIC MALIGNANT MELANOMA
     Dosage: 450 MG, QD (1/DAY)
     Route: 048
     Dates: start: 20200703
  3. MEKTOVI [Suspect]
     Active Substance: BINIMETINIB
     Indication: METASTATIC MALIGNANT MELANOMA
     Dosage: 45 MG, BID (2/DAY)
     Route: 048
     Dates: start: 20200703, end: 20200703
  4. MEKTOVI [Suspect]
     Active Substance: BINIMETINIB
     Dosage: 45 MG, BID (2/DAY)
     Route: 048
     Dates: start: 20200707

REACTIONS (1)
  - Chorioretinitis [Recovered/Resolved]

NARRATIVE: CASE EVENT DATE: 20200703
